FAERS Safety Report 15135227 (Version 17)
Quarter: 2019Q4

REPORT INFORMATION
  Report Type: Spontaneous
  Country: CA (occurrence: CA)
  Receive Date: 20180712
  Receipt Date: 20191217
  Transmission Date: 20200122
  Serious: Yes (Hospitalization, Other)
  Sender: FDA-Public Use
  Company Number: CA-CELLTRION INC.-2018CA021164

PATIENT

DRUGS (31)
  1. ALENDRONATE SANDOZ [Concomitant]
     Active Substance: ALENDRONATE SODIUM
     Indication: OSTEOPOROSIS
     Dosage: 70 MG, WEEKLY
     Route: 048
  2. TEVA PREGABALIN [Concomitant]
     Active Substance: PREGABALIN
     Dosage: 50MG 1X/DAY AT NOON, AND 150MG 2X/DAY AT 7AM AND 9PM
     Route: 048
  3. ALFUZOSIN SANDOZ [Concomitant]
     Active Substance: ALFUZOSIN
     Dosage: 10 MG, 1X/DAY
     Route: 048
  4. PREDNISONE. [Concomitant]
     Active Substance: PREDNISONE
     Dosage: UNK UNK, 2X/DAY
     Route: 065
  5. INFLECTRA [Suspect]
     Active Substance: INFLIXIMAB-DYYB
     Dosage: 500 MG AT 0, 2, 6 WEEKS, THEN EVERY 4 WEEKS
     Dates: start: 20180606, end: 20190423
  6. INFLECTRA [Suspect]
     Active Substance: INFLIXIMAB-DYYB
     Dosage: 500 MG, 0, 2, 6, THEN MAINTENANCE EVERY 4 WEEKS
     Route: 042
     Dates: start: 20180813, end: 20180813
  7. INFLECTRA [Suspect]
     Active Substance: INFLIXIMAB-DYYB
     Dosage: 500 MG,0, 2, 6, THEN MAINTENANCE EVERY 4 WEEKS
     Route: 042
     Dates: start: 20180913, end: 20180913
  8. INFLECTRA [Suspect]
     Active Substance: INFLIXIMAB-DYYB
     Dosage: 500 MG, 0, 2, 6, THEN MAINTENANCE EVERY 4 WEEKS
     Route: 042
     Dates: start: 20190128, end: 20190128
  9. INFLECTRA [Suspect]
     Active Substance: INFLIXIMAB-DYYB
     Dosage: 600 MG, EVERY 4 WEEKS
     Route: 042
     Dates: start: 20190812, end: 20190812
  10. INFLECTRA [Suspect]
     Active Substance: INFLIXIMAB-DYYB
     Dosage: 600 MG, EVERY 4 WEEKS
     Route: 042
     Dates: start: 20191008
  11. PREDNISONE TEVA [Concomitant]
     Active Substance: PREDNISONE
     Dosage: 40 MG, 1X/DAY FOR 7 DAYS AND TAPER
     Route: 048
  12. INFLECTRA [Suspect]
     Active Substance: INFLIXIMAB-DYYB
     Dosage: 500 MG, 0, 2, 6, THEN MAINTENANCE EVERY 4 WEEKS
     Route: 042
     Dates: start: 20181009, end: 20181009
  13. JAMP NYSTATIN [Concomitant]
     Dosage: RINSE MOUTH FOUR TIMES A DAY FOR 7 DAYS
     Route: 065
  14. JAMP CALCIUM [Concomitant]
     Dosage: 500 MG, 1X/DAY
     Route: 048
  15. PEPTIDES NOS [Concomitant]
     Dosage: 1 BOTTLE DAILY
     Route: 048
  16. INFLECTRA [Suspect]
     Active Substance: INFLIXIMAB-DYYB
     Indication: COLITIS ULCERATIVE
     Dosage: 500 MG, 0, 2, 6, THEN MAINTENANCE EVERY 4 WEEKS
     Route: 042
     Dates: start: 20180606, end: 20180606
  17. INFLECTRA [Suspect]
     Active Substance: INFLIXIMAB-DYYB
     Dosage: 500 MG, 0, 2, 6, THEN MAINTENANCE EVERY 4 WEEKS
     Route: 042
     Dates: start: 20180617, end: 20180617
  18. INFLECTRA [Suspect]
     Active Substance: INFLIXIMAB-DYYB
     Dosage: 500 MG, 0, 2, 6, THEN MAINTENANCE EVERY 4 WEEKS
     Route: 042
     Dates: start: 20190423, end: 20190423
  19. INFLECTRA [Suspect]
     Active Substance: INFLIXIMAB-DYYB
     Dosage: 600 MG, EVERY 4 WEEKS
     Route: 042
     Dates: start: 20190521, end: 20190521
  20. SPIRIVA [Concomitant]
     Active Substance: TIOTROPIUM BROMIDE MONOHYDRATE
     Dosage: 18 UG, ONCE DAILY
     Route: 055
  21. PREDNISONE TEVA [Concomitant]
     Active Substance: PREDNISONE
     Dosage: UNK
     Dates: start: 20190602
  22. LORAZEPAM. [Concomitant]
     Active Substance: LORAZEPAM
     Indication: INSOMNIA
     Dosage: TAKE 1/2 TABLET OF 0.5MG AT BEDTIME AS NEEDED
     Route: 048
  23. INFLECTRA [Suspect]
     Active Substance: INFLIXIMAB-DYYB
     Dosage: 500 MG, 0, 2, 6, THEN MAINTENANCE EVERY 4 WEEKS
     Route: 042
     Dates: start: 20190325, end: 20190325
  24. JAMP VITAMIN D [Concomitant]
     Dosage: 10000 IU, WEEKLY
     Route: 048
  25. INFLECTRA [Suspect]
     Active Substance: INFLIXIMAB-DYYB
     Dosage: 500 MG,0, 2, 6, THEN MAINTENANCE EVERY 4 WEEKS
     Route: 042
     Dates: start: 20180913, end: 20180913
  26. INFLECTRA [Suspect]
     Active Substance: INFLIXIMAB-DYYB
     Dosage: 500 MG, 0, 2, 6, THEN MAINTENANCE EVERY 4 WEEKS
     Route: 042
     Dates: start: 20180716, end: 20180716
  27. INFLECTRA [Suspect]
     Active Substance: INFLIXIMAB-DYYB
     Dosage: 600 MG, EVERY 4 WEEKS
     Route: 042
     Dates: start: 20190910, end: 20190910
  28. INFLECTRA [Suspect]
     Active Substance: INFLIXIMAB-DYYB
     Dosage: 600 MG, EVERY 4 WEEKS
     Dates: start: 20191203
  29. AZATHIOPRINE TEVA [Concomitant]
     Active Substance: AZATHIOPRINE
     Dosage: 50 MG, UNK
     Dates: start: 20180601
  30. AZATHIOPRINE TEVA [Concomitant]
     Active Substance: AZATHIOPRINE
     Dosage: 100 MG, 1X/DAY
     Route: 048
  31. CORTISONE [Concomitant]
     Active Substance: CORTISONE
     Dosage: UNK
     Route: 065
     Dates: start: 201911

REACTIONS (23)
  - Weight increased [Recovering/Resolving]
  - Hot flush [Not Recovered/Not Resolved]
  - Arrhythmia [Unknown]
  - C-reactive protein increased [Unknown]
  - Off label use [Unknown]
  - Fatigue [Not Recovered/Not Resolved]
  - Urinary tract infection [Unknown]
  - Intentional product use issue [Unknown]
  - Inappropriate schedule of product administration [Unknown]
  - Dyspnoea [Recovered/Resolved]
  - Joint swelling [Unknown]
  - Productive cough [Not Recovered/Not Resolved]
  - General physical health deterioration [Not Recovered/Not Resolved]
  - Pneumonia [Unknown]
  - Fall [Unknown]
  - Heart rate increased [Unknown]
  - Condition aggravated [Recovering/Resolving]
  - Chills [Not Recovered/Not Resolved]
  - Oropharyngeal pain [Not Recovered/Not Resolved]
  - Erythema [Unknown]
  - Testicular disorder [Unknown]
  - Hot flush [Not Recovered/Not Resolved]
  - Oxygen saturation decreased [Not Recovered/Not Resolved]

NARRATIVE: CASE EVENT DATE: 20180606
